FAERS Safety Report 4899728-9 (Version None)
Quarter: 2006Q1

REPORT INFORMATION
  Report Type: 
  Country: None (occurrence: None)
  Receive Date: 20060131
  Receipt Date: 20060117
  Transmission Date: 20060701
  Serious: Yes (Death, Hospitalization, Other)
  Sender: FDA-Public Use
  Company Number: 2006S1000070

PATIENT
  Age: 65 Year
  Sex: Female
  Weight: 65.6 kg

DRUGS (3)
  1. FUROSEMIDE [Suspect]
     Dosage: PO
     Route: 048
     Dates: start: 20040115, end: 20041018
  2. SPIRONOLACTONE [Suspect]
     Dosage: PO
     Route: 048
     Dates: end: 20040927
  3. BLINDED THERAPY (BLINDED THERAPY) [Suspect]
     Indication: PULMONARY HYPERTENSION
     Dosage: PO
     Route: 048

REACTIONS (9)
  - ATRIAL FLUTTER [None]
  - DIARRHOEA [None]
  - DISEASE PROGRESSION [None]
  - DISEASE RECURRENCE [None]
  - HYPONATRAEMIA [None]
  - HYPOXIA [None]
  - PLEURAL EFFUSION [None]
  - PULMONARY HYPERTENSION [None]
  - RIGHT VENTRICULAR FAILURE [None]
